FAERS Safety Report 15127382 (Version 2)
Quarter: 2019Q1

REPORT INFORMATION
  Report Type: Spontaneous
  Country: IT (occurrence: IT)
  Receive Date: 20180710
  Receipt Date: 20190212
  Transmission Date: 20190417
  Serious: Yes (Other)
  Sender: FDA-Public Use
  Company Number: IT-MYLANLABS-2018M1048274

PATIENT
  Age: 62 Year
  Sex: Female

DRUGS (7)
  1. MELPHALAN. [Suspect]
     Active Substance: MELPHALAN
     Indication: BONE MARROW CONDITIONING REGIMEN
     Dosage: 100 MILLIGRAM/SQ. METER
     Route: 065
     Dates: start: 201512
  2. BENDAMUSTINE HYDROCHLORIDE. [Suspect]
     Active Substance: BENDAMUSTINE HYDROCHLORIDE
     Indication: MANTLE CELL LYMPHOMA
     Dosage: 90 MG/MQ ON DAYS 1-2 OF 21-D CYCLE
     Route: 042
  3. METHOTREXATE. [Suspect]
     Active Substance: METHOTREXATE
     Indication: PROPHYLAXIS AGAINST GRAFT VERSUS HOST DISEASE
     Dosage: UNK
     Route: 065
     Dates: start: 201512
  4. CICLOSPORIN [Suspect]
     Active Substance: CYCLOSPORINE
     Indication: PROPHYLAXIS AGAINST GRAFT VERSUS HOST DISEASE
     Dosage: UNK
     Route: 065
     Dates: start: 201512
  5. THIOTEPA. [Suspect]
     Active Substance: THIOTEPA
     Indication: BONE MARROW CONDITIONING REGIMEN
     Dosage: 5 MILLIGRAM/KILOGRAM
     Route: 065
     Dates: start: 201512
  6. FLUDARABINE [Suspect]
     Active Substance: FLUDARABINE PHOSPHATE
     Indication: BONE MARROW CONDITIONING REGIMEN
     Dosage: 90 MILLIGRAM/SQ. METER
     Route: 065
     Dates: start: 201512
  7. LENALIDOMIDE [Concomitant]
     Active Substance: LENALIDOMIDE
     Indication: MANTLE CELL LYMPHOMA
     Dosage: 25 MG, UNK,25 MG ON DAYS 1-21 OF 28-D CYCLE, UNKNOWN FREQ.
     Route: 065

REACTIONS (7)
  - Acute graft versus host disease in intestine [Unknown]
  - Cytomegalovirus infection [Unknown]
  - Swelling [Recovered/Resolved]
  - Gastroenteritis clostridial [Unknown]
  - Off label use [Unknown]
  - Encephalitis [Recovering/Resolving]
  - Pneumococcal infection [Recovering/Resolving]
